FAERS Safety Report 25196411 (Version 4)
Quarter: 2025Q3

REPORT INFORMATION
  Report Type: Spontaneous
  Country: JP (occurrence: JP)
  Receive Date: 20250415
  Receipt Date: 20250826
  Transmission Date: 20251020
  Serious: Yes (Hospitalization, Other)
  Sender: MERCK SHARP & DOHME LLC
  Company Number: JP-009507513-2273947

PATIENT
  Age: 7 Decade
  Sex: Female

DRUGS (1)
  1. KEYTRUDA [Suspect]
     Active Substance: PEMBROLIZUMAB
     Indication: Triple negative breast cancer
     Dosage: 200MG X 1/3 WEEK
     Route: 042
     Dates: start: 202503, end: 2025

REACTIONS (5)
  - Aortic thrombosis [Unknown]
  - Thrombocytopenia [Unknown]
  - Respiratory disorder [Unknown]
  - Altered state of consciousness [Unknown]
  - Fulminant type 1 diabetes mellitus [Recovered/Resolved]

NARRATIVE: CASE EVENT DATE: 20250101
